FAERS Safety Report 10587086 (Version 3)
Quarter: 2016Q1

REPORT INFORMATION
  Report Type: Spontaneous
  Country: JP (occurrence: JP)
  Receive Date: 20141117
  Receipt Date: 20160121
  Transmission Date: 20160525
  Serious: Yes (Death, Hospitalization, Other)
  Sender: FDA-Public Use
  Company Number: JP-PFIZER INC-2013011835

PATIENT
  Age: 83 Year
  Sex: Male

DRUGS (1)
  1. VFEND [Suspect]
     Active Substance: VORICONAZOLE
     Indication: SINUSITIS ASPERGILLUS
     Dosage: 300 MG, DAILY
     Route: 048
     Dates: start: 20121130, end: 20130108

REACTIONS (3)
  - Therapeutic response decreased [Unknown]
  - Cardiac failure [Fatal]
  - Photophobia [Recovering/Resolving]

NARRATIVE: CASE EVENT DATE: 20130108
